FAERS Safety Report 14250644 (Version 1)
Quarter: 2017Q4

REPORT INFORMATION
  Report Type: Spontaneous
  Country: US (occurrence: US)
  Receive Date: 20171205
  Receipt Date: 20171205
  Transmission Date: 20180321
  Serious: No
  Sender: FDA-Public Use
  Company Number: US-ENDO PHARMACEUTICALS INC-2017-004483

PATIENT
  Age: 59 Year
  Sex: Female
  Weight: 40.82 kg

DRUGS (4)
  1. IRON [Concomitant]
     Active Substance: IRON
     Indication: PRODUCT USED FOR UNKNOWN INDICATION
  2. ALPRAZOLAM TABLETS 0.25 MG [Suspect]
     Active Substance: ALPRAZOLAM
     Indication: PANIC ATTACK
     Dosage: 1 DF, BID
     Route: 048
     Dates: start: 20170804, end: 20170804
  3. MULTIVITAMIN [Concomitant]
     Active Substance: VITAMINS
     Indication: PRODUCT USED FOR UNKNOWN INDICATION
  4. ALPRAZOLAM TABLETS 0.25 MG [Suspect]
     Active Substance: ALPRAZOLAM
     Indication: ANXIETY

REACTIONS (11)
  - Burning sensation [Recovering/Resolving]
  - Throat irritation [Recovering/Resolving]
  - Drug dose omission [Unknown]
  - Drug effect incomplete [Unknown]
  - Vision blurred [Not Recovered/Not Resolved]
  - Wrong technique in product usage process [Unknown]
  - Hypersensitivity [Recovering/Resolving]
  - Heart rate increased [Recovering/Resolving]
  - Product storage error [Unknown]
  - Dyspnoea [Recovering/Resolving]
  - Product size issue [Unknown]

NARRATIVE: CASE EVENT DATE: 2017
